FAERS Safety Report 10305482 (Version 2)
Quarter: 2014Q3

REPORT INFORMATION
  Report Type: Report from Study
  Country: JP (occurrence: JP)
  Receive Date: 20140715
  Receipt Date: 20140715
  Transmission Date: 20150326
  Serious: Yes (Other)
  Sender: FDA-Public Use
  Company Number: JP-ABBVIE-13X-087-1122514-00

PATIENT
  Age: 62 Year
  Sex: Female

DRUGS (2)
  1. CLARITH [Suspect]
     Active Substance: CLARITHROMYCIN
     Indication: PRODUCT USED FOR UNKNOWN INDICATION
     Dates: start: 20090622, end: 20090912
  2. CLARITH [Suspect]
     Active Substance: CLARITHROMYCIN
     Dates: start: 20091006, end: 20091006

REACTIONS (2)
  - Erythema multiforme [Recovering/Resolving]
  - Generalised erythema [Recovered/Resolved]

NARRATIVE: CASE EVENT DATE: 20090910
